FAERS Safety Report 6359243-2 (Version None)
Quarter: 2009Q3

REPORT INFORMATION
  Report Type: 
  Country: None (occurrence: None)
  Receive Date: 20090917
  Receipt Date: 20090908
  Transmission Date: 20100115
  Serious: Yes (Hospitalization)
  Sender: FDA-Public Use
  Company Number: PHHY2009JP38506

PATIENT
  Age: 39 Year
  Sex: Male

DRUGS (4)
  1. ZOMETA [Suspect]
     Indication: MULTIPLE MYELOMA
     Dosage: 4 MG SINGLE DOSE
     Route: 042
     Dates: start: 20090902
  2. ZOMETA [Suspect]
     Indication: BONE LESION
  3. OXYCONTIN [Suspect]
     Dosage: UNK
     Route: 048
     Dates: start: 20090902
  4. NSAID'S [Suspect]
     Route: 048

REACTIONS (2)
  - BLOOD LACTATE DEHYDROGENASE INCREASED [None]
  - PULMONARY OEDEMA [None]
